FAERS Safety Report 16342057 (Version 1)
Quarter: 2019Q2

REPORT INFORMATION
  Report Type: Spontaneous
  Country: US (occurrence: US)
  Receive Date: 20190521
  Receipt Date: 20190521
  Transmission Date: 20190711
  Serious: Yes (Life-Threatening, Hospitalization)
  Sender: FDA-Public Use
  Company Number: None

PATIENT
  Age: 38 Year
  Sex: Female
  Weight: 85.5 kg

DRUGS (4)
  1. HYDROCHLOROTHIASIDE 25MG [Concomitant]
  2. PREDNISONE 5MG [Concomitant]
     Active Substance: PREDNISONE
  3. LISINIPRIL [Suspect]
     Active Substance: LISINOPRIL
     Indication: HYPERTENSION
     Dosage: ?          QUANTITY:1 TABLET(S);?
     Route: 048
     Dates: start: 20100706, end: 20190511
  4. VITAFUSION-MULTIVITES [Concomitant]

REACTIONS (2)
  - Lip swelling [None]
  - Skin disorder [None]

NARRATIVE: CASE EVENT DATE: 20190511
